FAERS Safety Report 13289622 (Version 1)
Quarter: 2017Q1

REPORT INFORMATION
  Report Type: Spontaneous
  Country: PL (occurrence: PL)
  Receive Date: 20170302
  Receipt Date: 20170302
  Transmission Date: 20170428
  Serious: Yes (Hospitalization, Other)
  Sender: FDA-Public Use
  Company Number: PHHY2017PL030837

PATIENT
  Age: 53 Year
  Sex: Male

DRUGS (1)
  1. GILENYA [Suspect]
     Active Substance: FINGOLIMOD HYDROCHLORIDE
     Indication: MULTIPLE SCLEROSIS
     Dosage: UNK
     Route: 065

REACTIONS (6)
  - Muscular weakness [Recovering/Resolving]
  - Multiple sclerosis relapse [Recovering/Resolving]
  - Rebound effect [Recovering/Resolving]
  - Atrial fibrillation [Unknown]
  - Central nervous system lesion [Unknown]
  - Secondary progressive multiple sclerosis [Recovering/Resolving]
